FAERS Safety Report 4822620-2 (Version None)
Quarter: 2005Q4

REPORT INFORMATION
  Report Type: 
  Country: None (occurrence: None)
  Receive Date: 20051104
  Receipt Date: 20051024
  Transmission Date: 20060501
  Serious: Yes (Life-Threatening)
  Sender: FDA-Public Use
  Company Number: FEI2005-2618

PATIENT
  Age: 29 Year
  Sex: Female
  Weight: 82.5547 kg

DRUGS (3)
  1. INTRAUTERINE COPPER CONTRACEPTIVE [Suspect]
     Indication: CONTRACEPTION
     Dosage: INTRA-UTERINE
     Route: 015
     Dates: start: 19940101, end: 20050928
  2. INTRAUTERINE COPPER CONTRACEPTIVE [Suspect]
     Indication: CONTRACEPTION
     Dosage: INTRA-UTERINE
     Route: 015
     Dates: start: 20050928
  3. PERCOCET [Concomitant]

REACTIONS (4)
  - BREAST CANCER [None]
  - CANCER PAIN [None]
  - CERVIX DISORDER [None]
  - IUCD COMPLICATION [None]
